FAERS Safety Report 16237978 (Version 1)
Quarter: 2019Q2

REPORT INFORMATION
  Report Type: Spontaneous
  Country: US (occurrence: US)
  Receive Date: 20190425
  Receipt Date: 20190425
  Transmission Date: 20190711
  Serious: Yes (Hospitalization, Other)
  Sender: FDA-Public Use
  Company Number: US-AMGEN-USASP2019063072

PATIENT
  Age: 84 Year
  Sex: Female

DRUGS (1)
  1. PROLIA [Suspect]
     Active Substance: DENOSUMAB
     Indication: PRODUCT USED FOR UNKNOWN INDICATION
     Dosage: UNK
     Route: 065
     Dates: end: 201805

REACTIONS (5)
  - Heart rate increased [Unknown]
  - Cardiac disorder [Unknown]
  - Fall [Unknown]
  - Hypertension [Unknown]
  - Skull fracture [Unknown]

NARRATIVE: CASE EVENT DATE: 201810
